FAERS Safety Report 5384230-0 (Version None)
Quarter: 2007Q3

REPORT INFORMATION
  Report Type: 
  Country: None (occurrence: None)
  Receive Date: 20070710
  Receipt Date: 20060619
  Transmission Date: 20080115
  Serious: Yes (Hospitalization)
  Sender: FDA-Public Use
  Company Number: 2005-01246

PATIENT
  Age: 79 Year
  Sex: Male

DRUGS (2)
  1. VELCADE [Suspect]
     Indication: DRUG USE FOR UNKNOWN INDICATION
     Dates: start: 20050418
  2. IMMUNOGLOBULINS (IMMUNOGLOBULINS) [Concomitant]

REACTIONS (1)
  - HERPES ZOSTER [None]
